FAERS Safety Report 17459196 (Version 3)
Quarter: 2020Q2

REPORT INFORMATION
  Report Type: Report from Study
  Country: FR (occurrence: FR)
  Receive Date: 20200225
  Receipt Date: 20200520
  Transmission Date: 20200713
  Serious: Yes (Death, Other)
  Sender: FDA-Public Use
  Company Number: FR-JAZZ-2020-FR-002697

PATIENT

DRUGS (1)
  1. DEFITELIO [Suspect]
     Active Substance: DEFIBROTIDE SODIUM
     Indication: VENOOCCLUSIVE LIVER DISEASE
     Dosage: UNKNOWN DOSE, MG/KG/DAY
     Route: 042
     Dates: start: 20191004

REACTIONS (3)
  - Renal failure [Unknown]
  - Pulmonary toxicity [Fatal]
  - Infection [Fatal]

NARRATIVE: CASE EVENT DATE: 20191015
